FAERS Safety Report 5383493-5 (Version None)
Quarter: 2007Q3

REPORT INFORMATION
  Report Type: 
  Country: None (occurrence: None)
  Receive Date: 20070710
  Receipt Date: 20070703
  Transmission Date: 20080115
  Serious: Yes (Hospitalization, Other)
  Sender: FDA-Public Use
  Company Number: US-GENENTECH-224729

PATIENT
  Sex: Female
  Weight: 111 kg

DRUGS (9)
  1. XOLAIR [Suspect]
     Indication: ASTHMA
     Dosage: 300 MG, Q2W
     Route: 058
     Dates: start: 20060117
  2. XOLAIR [Suspect]
     Dosage: 40 MG, QD
     Dates: start: 20060505
  3. SINGULAIR [Concomitant]
     Indication: DRUG USE FOR UNKNOWN INDICATION
     Route: 065
  4. ADVAIR DISKUS 100/50 [Concomitant]
     Indication: DRUG USE FOR UNKNOWN INDICATION
     Route: 065
  5. ACCOLATE [Concomitant]
     Indication: DRUG USE FOR UNKNOWN INDICATION
     Route: 065
  6. DIAVAN (DIETARY SUPPLEMENT) [Concomitant]
     Indication: DRUG USE FOR UNKNOWN INDICATION
     Dosage: 320 UNK, QD
  7. NORVASC [Concomitant]
     Indication: DRUG USE FOR UNKNOWN INDICATION
  8. NEXIUM [Concomitant]
     Indication: DRUG USE FOR UNKNOWN INDICATION
     Dosage: 400 UNK, QD
     Route: 048
  9. ZOCOR [Concomitant]
     Indication: DRUG USE FOR UNKNOWN INDICATION

REACTIONS (23)
  - ARTHRITIS [None]
  - BACK PAIN [None]
  - CONTUSION [None]
  - DERMATITIS ALLERGIC [None]
  - ERYTHEMA NODOSUM [None]
  - EYE SWELLING [None]
  - GENERALISED ERYTHEMA [None]
  - HIATUS HERNIA [None]
  - HYPERTENSION [None]
  - INJECTION SITE BRUISING [None]
  - PAIN [None]
  - PSEUDOMONAS INFECTION [None]
  - PYREXIA [None]
  - RASH GENERALISED [None]
  - RENAL FAILURE [None]
  - RESPIRATORY TRACT CONGESTION [None]
  - SCIATICA [None]
  - SINUS CONGESTION [None]
  - SKIN DISCOLOURATION [None]
  - SKIN INFECTION [None]
  - SKIN NODULE [None]
  - SKIN ULCER [None]
  - THROAT IRRITATION [None]
